FAERS Safety Report 4346500-4 (Version None)
Quarter: 2004Q2

REPORT INFORMATION
  Report Type: 
  Country: None (occurrence: None)
  Receive Date: 20040426
  Receipt Date: 20030919
  Transmission Date: 20050107
  Serious: Yes (Other)
  Sender: FDA-Public Use
  Company Number: US-BRISTOL-MYERS SQUIBB COMPANY-12388013

PATIENT
  Age: 42 Year
  Sex: Female
  Weight: 80 kg

DRUGS (11)
  1. CARBOPLATIN [Suspect]
     Indication: OVARIAN CANCER
     Dosage: CYCLE 1 ON 06AUG03 ADD'L LOT# 3E75214,(31DEC05), 3A61788+3G72927(31OCT05), 3B73720,(31MAR06)
     Dates: start: 20030827, end: 20030827
  2. TAXOL [Concomitant]
     Indication: OVARIAN CANCER
     Dosage: 1ST CYCLE ON 06AUG03
     Dates: start: 20030827, end: 20030827
  3. OXYCONTIN [Concomitant]
  4. ATIVAN [Concomitant]
  5. MIRALAX [Concomitant]
  6. ARANESP [Concomitant]
     Route: 058
  7. BENADRYL [Concomitant]
     Indication: PREMEDICATION
     Route: 042
  8. ZANTAC [Concomitant]
     Indication: PREMEDICATION
     Route: 042
  9. DECADRON [Concomitant]
     Indication: PREMEDICATION
     Route: 042
  10. KYTRIL [Concomitant]
     Indication: PREMEDICATION
     Route: 042
  11. HEPARIN [Concomitant]
     Dosage: 100 UNITS @ END OF EA. TREATMENT

REACTIONS (1)
  - HYPERSENSITIVITY [None]
